FAERS Safety Report 7530953-4 (Version None)
Quarter: 2011Q2

REPORT INFORMATION
  Report Type: 
  Country: None (occurrence: None)
  Receive Date: 20110608
  Receipt Date: 20110603
  Transmission Date: 20111010
  Serious: Yes (Other)
  Sender: FDA-Public Use
  Company Number: US-AMGEN-USASP2011024765

PATIENT
  Age: 42 Year
  Sex: Female
  Weight: 92.063 kg

DRUGS (5)
  1. NPLATE [Suspect]
  2. NPLATE [Suspect]
     Dosage: UNK UNK, QWK
     Route: 058
  3. NPLATE [Suspect]
     Indication: IDIOPATHIC THROMBOCYTOPENIC PURPURA
     Dosage: 1 A?G/KG, UNK
     Dates: start: 20101229, end: 20110428
  4. NPLATE [Suspect]
  5. CORTICOSTEROIDS [Concomitant]

REACTIONS (3)
  - THERAPEUTIC RESPONSE DECREASED [None]
  - PLATELET COUNT INCREASED [None]
  - THROMBOCYTOPENIA [None]
